FAERS Safety Report 20394387 (Version 1)
Quarter: 2022Q1

REPORT INFORMATION
  Report Type: Spontaneous
  Country: US (occurrence: US)
  Receive Date: 20220129
  Receipt Date: 20220129
  Transmission Date: 20220423
  Serious: Yes (Life-Threatening, Other)
  Sender: FDA-Public Use
  Company Number: US-AMGEN-USASP2022013913

PATIENT

DRUGS (2)
  1. APREMILAST [Suspect]
     Active Substance: APREMILAST
     Indication: Vitiligo
     Dosage: UNK
     Route: 048
  2. APREMILAST [Suspect]
     Active Substance: APREMILAST
     Indication: Off label use

REACTIONS (4)
  - Pigmentation disorder [Unknown]
  - Drug effective for unapproved indication [Unknown]
  - Adverse event [Unknown]
  - Off label use [Unknown]
